FAERS Safety Report 12751381 (Version 1)
Quarter: 2016Q3

REPORT INFORMATION
  Report Type: Spontaneous
  Country: US (occurrence: US)
  Receive Date: 20160915
  Receipt Date: 20160915
  Transmission Date: 20161109
  Serious: Yes (Other)
  Sender: FDA-Public Use
  Company Number: US-BION-20160274

PATIENT
  Age: 25 Year
  Sex: Female
  Weight: 54.43 kg

DRUGS (2)
  1. PROGESTERONE CAPSULES [Suspect]
     Active Substance: PROGESTERONE
     Indication: HIGH RISK PREGNANCY
     Dosage: 1 DSF VAGINALLY QID
     Route: 067
  2. PRENATAL VITAMINS [Concomitant]
     Active Substance: VITAMINS
     Dates: start: 20160614

REACTIONS (5)
  - Product use issue [Unknown]
  - Insomnia [None]
  - Abortion spontaneous [Unknown]
  - Vaginal discharge [Not Recovered/Not Resolved]
  - Drug prescribing error [Not Recovered/Not Resolved]
